FAERS Safety Report 6999179-7 (Version None)
Quarter: 2010Q3

REPORT INFORMATION
  Report Type: 
  Country: None (occurrence: None)
  Receive Date: 20100920
  Receipt Date: 20100414
  Transmission Date: 20110219
  Serious: No
  Sender: FDA-Public Use
  Company Number: US-ASTRAZENECA-2010SE00202

PATIENT
  Age: 64 Year
  Sex: Male
  Weight: 99.8 kg

DRUGS (2)
  1. SEROQUEL [Suspect]
     Route: 048
  2. LORTAB [Concomitant]

REACTIONS (4)
  - CHILLS [None]
  - DRUG DOSE OMISSION [None]
  - INSOMNIA [None]
  - TREMOR [None]
